FAERS Safety Report 17909898 (Version 1)
Quarter: 2020Q2

REPORT INFORMATION
  Report Type: Spontaneous
  Country: JP (occurrence: JP)
  Receive Date: 20200617
  Receipt Date: 20200617
  Transmission Date: 20200714
  Serious: Yes (Death, Other)
  Sender: FDA-Public Use
  Company Number: JP-GALDERMA-JP2020009858

PATIENT
  Age: 90 Year
  Sex: Female

DRUGS (2)
  1. ROZEX (METRONIDAZOLE) [Suspect]
     Active Substance: METRONIDAZOLE
     Dosage: 0.75%
     Route: 061
     Dates: start: 20200311
  2. ROZEX (METRONIDAZOLE) [Suspect]
     Active Substance: METRONIDAZOLE
     Indication: WOUND COMPLICATION
     Dosage: 0.75%
     Route: 061
     Dates: start: 20200129, end: 20200212

REACTIONS (4)
  - Application site irritation [Not Recovered/Not Resolved]
  - Neoplasm malignant [Fatal]
  - Application site pruritus [Not Recovered/Not Resolved]
  - Application site eczema [Not Recovered/Not Resolved]

NARRATIVE: CASE EVENT DATE: 20200212
